FAERS Safety Report 9300252 (Version 4)
Quarter: 2013Q2

REPORT INFORMATION
  Report Type: Spontaneous
  Country: GB (occurrence: GB)
  Receive Date: 20130521
  Receipt Date: 20130624
  Transmission Date: 20140414
  Serious: Yes (Other)
  Sender: FDA-Public Use
  Company Number: PHFR2013GB002466

PATIENT
  Age: 24 Year
  Sex: Male
  Weight: 94 kg

DRUGS (5)
  1. CLOZARIL [Suspect]
     Indication: SCHIZOPHRENIA
     Dosage: UNK
     Route: 048
     Dates: start: 20110404
  2. CLOZARIL [Suspect]
     Dosage: 75 MG MANE AND 200 MG NOCTE
     Route: 048
     Dates: start: 201206, end: 20130425
  3. CLOZARIL [Suspect]
     Dosage: 275 MG
     Route: 048
     Dates: end: 20130426
  4. CLOZARIL [Suspect]
     Dosage: UNK
     Dates: start: 20130514
  5. CLOZARIL [Suspect]
     Dosage: UNK
     Dates: start: 20130521

REACTIONS (10)
  - Infectious mononucleosis [Recovered/Resolved]
  - Nasopharyngitis [Unknown]
  - Influenza like illness [Unknown]
  - C-reactive protein increased [Unknown]
  - White blood cell count decreased [Recovered/Resolved]
  - Neutropenia [Recovered/Resolved]
  - Platelet count decreased [Recovered/Resolved]
  - Infection [Unknown]
  - Lethargy [Unknown]
  - Oropharyngeal pain [Unknown]
